FAERS Safety Report 21878310 (Version 1)
Quarter: 2023Q1

REPORT INFORMATION
  Report Type: Spontaneous
  Country: US (occurrence: None)
  Receive Date: 20230117
  Receipt Date: 20230117
  Transmission Date: 20230417
  Serious: Yes (Other)
  Sender: FDA-Public Use
  Company Number: None

PATIENT
  Age: 44 Year
  Sex: Female
  Weight: 74.25 kg

DRUGS (2)
  1. ASCLERA [Suspect]
     Active Substance: POLIDOCANOL
     Indication: Spider vein
     Route: 042
  2. PROBIOTICS NOS [Concomitant]
     Active Substance: PROBIOTICS NOS

REACTIONS (8)
  - Vomiting [None]
  - Cold sweat [None]
  - Dyspnoea [None]
  - Palpitations [None]
  - Inflammatory marker increased [None]
  - Chest discomfort [None]
  - Feeling abnormal [None]
  - Injection related reaction [None]

NARRATIVE: CASE EVENT DATE: 20230109
